FAERS Safety Report 7654317-8 (Version None)
Quarter: 2011Q3

REPORT INFORMATION
  Report Type: 
  Country: None (occurrence: None)
  Receive Date: 20110803
  Receipt Date: 20110726
  Transmission Date: 20111222
  Serious: Yes (Hospitalization, Other)
  Sender: FDA-Public Use
  Company Number: PHEH2006US10897

PATIENT
  Sex: Male
  Weight: 98 kg

DRUGS (43)
  1. ALLOPURINOL [Concomitant]
     Dosage: 300 MG, QD
     Route: 048
  2. PERCOCET [Concomitant]
  3. MULTI-VITAMINS [Concomitant]
  4. ZOLOFT [Concomitant]
  5. SODIUM CHLORIDE [Concomitant]
  6. ACCUNEB [Concomitant]
  7. TRELSTAR LA [Concomitant]
     Dosage: 11.25 MG, UNK
     Route: 030
  8. AMBIEN [Concomitant]
  9. KETOCONAZOLE [Concomitant]
  10. PROTONIX [Concomitant]
  11. ZOMETA [Suspect]
     Indication: METASTASES TO BONE
     Dosage: 4 MG, QMO
     Dates: start: 20050101, end: 20060410
  12. CELEBREX [Concomitant]
     Dosage: 200 MG, UNK
  13. CORTICOSTEROID NOS [Concomitant]
     Route: 008
     Dates: start: 20060201
  14. ELIGARD [Concomitant]
     Dosage: 7.5 UNK, UNK
     Dates: start: 20050101
  15. MS CONTIN [Concomitant]
  16. CIALIS [Concomitant]
     Dosage: 20 MG, UNK
  17. ALTACE [Concomitant]
  18. ALBUTEROL SULFATE AUTOHALER [Concomitant]
  19. LYCOPENE [Concomitant]
  20. LUNESTA [Concomitant]
     Dosage: 3 MG, UNK
  21. ASPIRIN [Concomitant]
     Dosage: 81 MG, UNK
  22. ATENOLOL [Concomitant]
  23. FENTANYL [Concomitant]
  24. FORADIL                                 /DEN/ [Concomitant]
  25. LASIX [Concomitant]
     Dosage: 20 MG, UNK
  26. SPIRIVA [Concomitant]
     Dosage: 30 MG, UNK
  27. PROTONIX [Concomitant]
     Dosage: 40 MG, QD
  28. MUCINEX [Concomitant]
  29. AMBIEN [Concomitant]
     Indication: SLEEP DISORDER
     Dosage: 10 MG, UNK
     Route: 048
  30. FOLIC ACID [Concomitant]
  31. HYDROCODONE [Concomitant]
  32. FLOMAX [Concomitant]
  33. PREDNISONE [Concomitant]
  34. AFRIN [Concomitant]
  35. LOVAZA [Concomitant]
  36. DURAGESIC-100 [Concomitant]
     Dosage: 25 UG, UNK
  37. CALCIUM ACETATE [Concomitant]
  38. SUDAFED 12 HOUR [Concomitant]
  39. FLONASE [Concomitant]
  40. MUCINEX [Concomitant]
     Dosage: 10 MG, UNK
  41. ZOCOR [Concomitant]
     Dosage: 40 MG, UNK
  42. ABILIFY [Concomitant]
  43. RESTORIL [Concomitant]

REACTIONS (77)
  - SPINAL OSTEOARTHRITIS [None]
  - POLLAKIURIA [None]
  - PROSTATIC OBSTRUCTION [None]
  - LUNG INFILTRATION [None]
  - NEOPLASM MALIGNANT [None]
  - PNEUMONIA [None]
  - BONE NEOPLASM MALIGNANT [None]
  - SPINAL COLUMN STENOSIS [None]
  - RADICULITIS LUMBOSACRAL [None]
  - MUSCULAR WEAKNESS [None]
  - JAW DISORDER [None]
  - METASTASES TO BONE [None]
  - TOOTH INFECTION [None]
  - DEAFNESS [None]
  - CHRONIC OBSTRUCTIVE PULMONARY DISEASE [None]
  - DYSPNOEA [None]
  - MEMORY IMPAIRMENT [None]
  - GASTRITIS [None]
  - PULMONARY FIBROSIS [None]
  - CORONARY ARTERY DISEASE [None]
  - DENTAL CARIES [None]
  - GINGIVAL PAIN [None]
  - EAR CONGESTION [None]
  - CONTUSION [None]
  - GAIT DISTURBANCE [None]
  - CHEST PAIN [None]
  - ARTHRALGIA [None]
  - FALL [None]
  - ENCEPHALOPATHY [None]
  - VOMITING [None]
  - PULMONARY CONGESTION [None]
  - JOINT INJURY [None]
  - CYST [None]
  - PAIN [None]
  - ANXIETY [None]
  - NOCTURIA [None]
  - BUNDLE BRANCH BLOCK RIGHT [None]
  - SINUS CONGESTION [None]
  - OROPHARYNGEAL PAIN [None]
  - SKIN LESION [None]
  - TENDON DISORDER [None]
  - BONE DENSITY DECREASED [None]
  - SKIN ULCER [None]
  - MAJOR DEPRESSION [None]
  - COUGH [None]
  - TOOTHACHE [None]
  - RHINITIS ALLERGIC [None]
  - LOCALISED INFECTION [None]
  - PYREXIA [None]
  - OSTEONECROSIS OF JAW [None]
  - PROSTATIC SPECIFIC ANTIGEN INCREASED [None]
  - COGNITIVE DISORDER [None]
  - APPENDICITIS [None]
  - CARDIOMEGALY [None]
  - TOOTH ABSCESS [None]
  - UPPER RESPIRATORY TRACT INFECTION [None]
  - VISUAL IMPAIRMENT [None]
  - INJURY [None]
  - MUSCULOSKELETAL PAIN [None]
  - PAIN IN EXTREMITY [None]
  - MICTURITION URGENCY [None]
  - PROSTATE CANCER RECURRENT [None]
  - CONFUSIONAL STATE [None]
  - BASAL CELL CARCINOMA [None]
  - SINUS TACHYCARDIA [None]
  - ABDOMINAL PAIN [None]
  - NAUSEA [None]
  - CELLULITIS [None]
  - JOINT EFFUSION [None]
  - BACK PAIN [None]
  - OEDEMA PERIPHERAL [None]
  - SKIN PAPILLOMA [None]
  - SYNCOPE [None]
  - DIVERTICULUM INTESTINAL [None]
  - MYOCLONUS [None]
  - NASAL CONGESTION [None]
  - BRONCHITIS [None]
